FAERS Safety Report 25974660 (Version 3)
Quarter: 2025Q4

REPORT INFORMATION
  Report Type: Spontaneous
  Country: LB (occurrence: LB)
  Receive Date: 20251029
  Receipt Date: 20251110
  Transmission Date: 20260118
  Serious: Yes (Other)
  Sender: PFIZER
  Company Number: LB-MLMSERVICE-20251016-PI671839-00147-1

PATIENT
  Age: 42 Year
  Sex: Female

DRUGS (4)
  1. NIVESTYM [Suspect]
     Active Substance: FILGRASTIM-AAFI
     Indication: Myeloid leukaemia
     Dosage: 300 UG, 1X/DAY (ON DAY 10 OF CHEMOTHERAPY (HOSPITAL DAY 22))
  2. NIVESTYM [Suspect]
     Active Substance: FILGRASTIM-AAFI
     Dosage: 300 UG, 2X/DAY (FREQ:12 H, 3 DAYS LATER (HOSPITAL DAY 25)
  3. CYTARABINE [Concomitant]
     Active Substance: CYTARABINE
     Indication: Myeloid leukaemia
     Dosage: INDUCTION CHEMOTHERAPY, ON HOSPITAL DAY 12
  4. DAUNORUBICIN [Concomitant]
     Active Substance: DAUNORUBICIN
     Indication: Myeloid leukaemia
     Dosage: INDUCTION CHEMOTHERAPY, ON HOSPITAL DAY 12

REACTIONS (1)
  - Hyperbilirubinaemia [Recovering/Resolving]
